FAERS Safety Report 11319231 (Version 2)
Quarter: 2017Q2

REPORT INFORMATION
  Report Type: Spontaneous
  Country: US (occurrence: US)
  Receive Date: 20150729
  Receipt Date: 20170608
  Transmission Date: 20170829
  Serious: No
  Sender: FDA-Public Use
  Company Number: US-ACTELION PHARMACEUTICALS US, INC.-A-US2015-118418

PATIENT
  Age: 77 Year
  Sex: Female

DRUGS (9)
  1. OPSUMIT [Suspect]
     Active Substance: MACITENTAN
     Indication: PULMONARY ARTERIAL HYPERTENSION
     Dosage: 10 MG, QD
     Route: 048
     Dates: start: 20150331
  2. DIOVAN [Concomitant]
     Active Substance: VALSARTAN
  3. TIMOLOL. [Concomitant]
     Active Substance: TIMOLOL
  4. ADCIRCA [Concomitant]
     Active Substance: TADALAFIL
  5. OCUVITE [Concomitant]
     Active Substance: VITAMINS
  6. LASIX [Concomitant]
     Active Substance: FUROSEMIDE
  7. LOTEMAX [Concomitant]
     Active Substance: LOTEPREDNOL ETABONATE
  8. METOPROLOL. [Concomitant]
     Active Substance: METOPROLOL
  9. OMEPRAZOLE. [Concomitant]
     Active Substance: OMEPRAZOLE

REACTIONS (1)
  - Erythema [Recovering/Resolving]

NARRATIVE: CASE EVENT DATE: 20150516
